FAERS Safety Report 23259568 (Version 1)
Quarter: 2023Q4

REPORT INFORMATION
  Report Type: Spontaneous
  Country: US (occurrence: None)
  Receive Date: 20231204
  Receipt Date: 20231204
  Transmission Date: 20240110
  Serious: No
  Sender: FDA-Public Use
  Company Number: None

PATIENT
  Sex: Male

DRUGS (2)
  1. LENALIDOMIDE [Suspect]
     Active Substance: LENALIDOMIDE
     Indication: Plasma cell myeloma
     Dosage: OTHER FREQUENCY : 14 ON/7OFF;?
     Route: 048
     Dates: start: 202309
  2. NYVEPRIA PFS [Concomitant]

REACTIONS (4)
  - Hypoaesthesia [None]
  - Drug dispensed to wrong patient [None]
  - Product dispensing error [None]
  - Therapy interrupted [None]
